FAERS Safety Report 5798541-8 (Version None)
Quarter: 2008Q3

REPORT INFORMATION
  Report Type: 
  Country: None (occurrence: None)
  Receive Date: 20080702
  Receipt Date: 20080618
  Transmission Date: 20090109
  Serious: Yes (Death)
  Sender: FDA-Public Use
  Company Number: US-BAYER-200821170GPV

PATIENT

DRUGS (1)
  1. ASPIRIN [Suspect]
     Route: 065

REACTIONS (1)
  - RESPIRATORY ACIDOSIS [None]
